FAERS Safety Report 5935776-5 (Version None)
Quarter: 2008Q4

REPORT INFORMATION
  Report Type: 
  Country: None (occurrence: None)
  Receive Date: 20081030
  Receipt Date: 20081023
  Transmission Date: 20090506
  Serious: Yes (Hospitalization, Disabling)
  Sender: FDA-Public Use
  Company Number: US-WATSON-2008-06344

PATIENT
  Sex: Male
  Weight: 102 kg

DRUGS (15)
  1. NORCO 10/325 (WATSON LABORATORIES) [Suspect]
     Indication: DRUG USE FOR UNKNOWN INDICATION
     Dosage: 10 MG, Q4H
     Route: 048
     Dates: start: 20030314, end: 20030708
  2. ACTIQ [Suspect]
     Indication: ARTHRALGIA
     Dosage: 600 UG, BID
     Route: 002
     Dates: start: 20060313
  3. ACTIQ [Suspect]
     Dosage: 600 UG, PRN
     Route: 002
     Dates: start: 20060209, end: 20060312
  4. ACTIQ [Suspect]
     Dosage: 3 TO 9 LOZENGES DAILY
     Route: 002
     Dates: start: 20030315, end: 20030708
  5. ACTIQ [Suspect]
     Dosage: 600 UG, QID
     Route: 002
     Dates: start: 20021122, end: 20030314
  6. ACTIQ [Suspect]
     Dosage: 400 UG, PRN
     Route: 002
     Dates: start: 20020116, end: 20020301
  7. DURAGESIC-100 [Suspect]
     Indication: DRUG USE FOR UNKNOWN INDICATION
     Dosage: 100 UG, Q1H
     Route: 062
     Dates: start: 20020917, end: 20030708
  8. DURAGESIC-100 [Suspect]
     Dosage: 75 UG, Q1H
     Route: 062
     Dates: start: 20020819, end: 20020916
  9. DURAGESIC-100 [Suspect]
     Dosage: 50 UG, Q1H
     Route: 062
     Dates: start: 20020130, end: 20020818
  10. DURAGESIC-100 [Suspect]
     Dosage: 50 UG, Q1H
     Route: 062
     Dates: start: 20010814, end: 20020116
  11. DURAGESIC-100 [Suspect]
     Dosage: 25 UG, Q1H
     Route: 062
     Dates: start: 20010716, end: 20010813
  12. ULTRAM [Suspect]
     Indication: DRUG USE FOR UNKNOWN INDICATION
     Dosage: UNK
     Route: 065
     Dates: start: 20010611, end: 20020130
  13. NEURONTIN [Suspect]
     Indication: DRUG USE FOR UNKNOWN INDICATION
     Dosage: 400 MG, TID
     Route: 065
     Dates: start: 20010913, end: 20030101
  14. NEURONTIN [Suspect]
     Dosage: ESCALATING DOSE
     Route: 065
     Dates: start: 20010611, end: 20010921
  15. VICOPROFEN [Suspect]
     Indication: BREAKTHROUGH PAIN
     Dosage: UNK
     Route: 065
     Dates: start: 20010913, end: 20030201

REACTIONS (9)
  - COGNITIVE DISORDER [None]
  - DEPRESSION [None]
  - DRUG DEPENDENCE [None]
  - DRUG INEFFECTIVE [None]
  - FATIGUE [None]
  - HALLUCINATION, AUDITORY [None]
  - INSOMNIA [None]
  - SOMNOLENCE [None]
  - TOOTH DISORDER [None]
